FAERS Safety Report 8494971-4 (Version None)
Quarter: 2012Q3

REPORT INFORMATION
  Report Type: 
  Country: None (occurrence: None)
  Receive Date: 20120709
  Receipt Date: 20120627
  Transmission Date: 20120928
  Serious: Yes (Hospitalization)
  Sender: FDA-Public Use
  Company Number: FR-BRISTOL-MYERS SQUIBB COMPANY-16724924

PATIENT
  Age: 81 Year
  Sex: Male

DRUGS (9)
  1. BRISTOPEN INJ [Suspect]
     Route: 042
     Dates: start: 20120531
  2. ATARAX [Concomitant]
  3. LANTUS [Concomitant]
  4. COUMADIN [Interacting]
     Route: 048
  5. BISOPROLOL FUMARATE [Concomitant]
  6. PREDNISONE TAB [Concomitant]
  7. ATORVASTATIN [Concomitant]
  8. LASIX [Concomitant]
  9. NEXIUM [Concomitant]

REACTIONS (2)
  - INTERNATIONAL NORMALISED RATIO INCREASED [None]
  - DRUG INTERACTION [None]
